FAERS Safety Report 13805557 (Version 1)
Quarter: 2017Q3

REPORT INFORMATION
  Report Type: Spontaneous
  Country: NL (occurrence: NL)
  Receive Date: 20170728
  Receipt Date: 20170728
  Transmission Date: 20171127
  Serious: Yes (Other)
  Sender: FDA-Public Use
  Company Number: PHHY2017NL110685

PATIENT
  Sex: Male

DRUGS (8)
  1. PARACETAMOL [Suspect]
     Active Substance: ACETAMINOPHEN
     Indication: LIMB INJURY
  2. PARACETAMOL [Suspect]
     Active Substance: ACETAMINOPHEN
     Indication: NERVE INJURY
     Route: 065
  3. PREGABALIN. [Suspect]
     Active Substance: PREGABALIN
     Indication: LIMB INJURY
  4. PREDNISONE. [Suspect]
     Active Substance: PREDNISONE
     Indication: NERVE INJURY
     Route: 065
  5. AMITRIPTYLINE [Suspect]
     Active Substance: AMITRIPTYLINE
     Indication: NERVE INJURY
     Route: 065
  6. AMITRIPTYLINE [Suspect]
     Active Substance: AMITRIPTYLINE
     Indication: LIMB INJURY
  7. PREGABALIN. [Suspect]
     Active Substance: PREGABALIN
     Indication: NERVE INJURY
     Dosage: UNK UNK, BID
     Route: 065
  8. PREDNISONE. [Suspect]
     Active Substance: PREDNISONE
     Indication: LIMB INJURY

REACTIONS (7)
  - Blindness transient [Unknown]
  - Visual impairment [Not Recovered/Not Resolved]
  - Eye irritation [Unknown]
  - Eye disorder [Unknown]
  - Vision blurred [Unknown]
  - Colour blindness [Not Recovered/Not Resolved]
  - Astigmatism [Not Recovered/Not Resolved]
